FAERS Safety Report 6642685-5 (Version None)
Quarter: 2010Q1

REPORT INFORMATION
  Report Type: 
  Country: None (occurrence: None)
  Receive Date: 20100316
  Receipt Date: 20100303
  Transmission Date: 20100710
  Serious: Yes (Hospitalization)
  Sender: FDA-Public Use
  Company Number: 1000011951

PATIENT
  Sex: Male

DRUGS (3)
  1. MEMANTINE HCL [Suspect]
     Indication: SENILE DEMENTIA
     Dosage: SEE IMAGE
     Route: 048
     Dates: start: 20091219
  2. ANTIBIOTICS (TABLETS) [Suspect]
  3. BRONCHIAL DILATORS [Concomitant]

REACTIONS (6)
  - AGITATION [None]
  - ALANINE AMINOTRANSFERASE INCREASED [None]
  - BLOOD ALKALINE PHOSPHATASE INCREASED [None]
  - DELIRIUM [None]
  - GAMMA-GLUTAMYLTRANSFERASE INCREASED [None]
  - HALLUCINATION [None]
